FAERS Safety Report 23914099 (Version 1)
Quarter: 2024Q2

REPORT INFORMATION
  Report Type: Spontaneous
  Country: JP (occurrence: JP)
  Receive Date: 20240529
  Receipt Date: 20240529
  Transmission Date: 20240716
  Serious: Yes (Hospitalization, Other)
  Sender: FDA-Public Use
  Company Number: JP-Accord-426681

PATIENT
  Age: 82 Year
  Sex: Male

DRUGS (2)
  1. METHOTREXATE [Suspect]
     Active Substance: METHOTREXATE
     Indication: Rheumatoid arthritis
  2. APIXABAN [Concomitant]
     Active Substance: APIXABAN
     Indication: Anticoagulant therapy

REACTIONS (5)
  - Epstein-Barr virus associated lymphoproliferative disorder [Recovered/Resolved]
  - Femoral artery aneurysm [Recovered/Resolved]
  - Cardiac ventricular thrombosis [Recovered/Resolved]
  - Deep vein thrombosis [Recovered/Resolved]
  - Peripheral artery thrombosis [Recovered/Resolved]
